FAERS Safety Report 4686664-6 (Version None)
Quarter: 2005Q2

REPORT INFORMATION
  Report Type: 
  Country: None (occurrence: None)
  Receive Date: 20050609
  Receipt Date: 20050602
  Transmission Date: 20051028
  Serious: Yes (Hospitalization)
  Sender: FDA-Public Use
  Company Number: 2005PK00962

PATIENT
  Age: 49 Year
  Sex: Male

DRUGS (14)
  1. NEXIUM [Suspect]
     Route: 048
     Dates: start: 20050421
  2. COMBIVIR [Suspect]
     Route: 048
     Dates: start: 20050101, end: 20050512
  3. INVIRASE KAPSELN [Suspect]
     Route: 048
     Dates: end: 20050512
  4. REMERON [Suspect]
     Route: 048
     Dates: start: 20050301
  5. PREDNISON STREULI [Concomitant]
     Route: 048
     Dates: start: 20040101
  6. NORVIR [Concomitant]
     Indication: HIV INFECTION
     Route: 048
     Dates: start: 20050101, end: 20050512
  7. DALACIN C [Concomitant]
     Route: 048
     Dates: start: 20050324
  8. DE-URSIL RR [Concomitant]
     Route: 048
     Dates: start: 20050421
  9. CALCIMAGON-D3 [Concomitant]
     Route: 048
     Dates: start: 20050421
  10. KCL-RETARD ZYMA [Concomitant]
     Route: 048
  11. MAGNESIOCARD CITRON [Concomitant]
     Route: 048
  12. VITIRON [Concomitant]
     Route: 048
     Dates: start: 20050502
  13. METHADON STREULI [Concomitant]
     Dosage: 1% SOLUTION
     Route: 048
  14. AGAROL [Concomitant]
     Route: 048
     Dates: start: 20050422

REACTIONS (5)
  - APLASTIC ANAEMIA [None]
  - BILIRUBIN CONJUGATED INCREASED [None]
  - BLOOD BILIRUBIN INCREASED [None]
  - BLOOD LACTATE DEHYDROGENASE INCREASED [None]
  - THROMBOCYTOPENIA [None]
